FAERS Safety Report 7663286-6 (Version None)
Quarter: 2011Q3

REPORT INFORMATION
  Report Type: 
  Country: None (occurrence: None)
  Receive Date: 20110805
  Receipt Date: 20100831
  Transmission Date: 20111222
  Serious: No
  Sender: FDA-Public Use
  Company Number: US-ABBOTT-10P-163-0667247-00

PATIENT
  Sex: Male
  Weight: 128.48 kg

DRUGS (4)
  1. NIASPAN [Suspect]
     Indication: BLOOD CHOLESTEROL ABNORMAL
  2. NIASPAN [Suspect]
     Dosage: 500MG AT BEDTIME
  3. MEN'S HEALTH MULTI-VITAMIN [Concomitant]
     Indication: PRODUCT USED FOR UNKNOWN INDICATION
  4. FISH OIL [Concomitant]
     Indication: PRODUCT USED FOR UNKNOWN INDICATION
     Dosage: 4 TABLETS AT BEDTIME

REACTIONS (2)
  - DIZZINESS [None]
  - FLUSHING [None]
